FAERS Safety Report 9155632 (Version 1)
Quarter: 2013Q1

REPORT INFORMATION
  Report Type: Spontaneous
  Country: BR (occurrence: BR)
  Receive Date: 20130311
  Receipt Date: 20130311
  Transmission Date: 20140127
  Serious: Yes (Hospitalization)
  Sender: FDA-Public Use
  Company Number: BR-ASTRAZENECA-2013SE14489

PATIENT
  Age: 683 Month
  Sex: Female

DRUGS (3)
  1. ATACAND HCT [Suspect]
     Indication: HYPERTENSION
     Dosage: 8/12.5 MG, ONCE DAILY
     Route: 048
     Dates: start: 2011
  2. NEXIUM [Suspect]
     Indication: GASTRITIS
     Route: 048
     Dates: start: 20121220, end: 20130228
  3. NEXIUM [Suspect]
     Indication: GASTRITIS
     Route: 048

REACTIONS (3)
  - Cholelithiasis [Recovered/Resolved]
  - Gastritis [Recovering/Resolving]
  - Drug ineffective [Unknown]
